FAERS Safety Report 13643883 (Version 2)
Quarter: 2017Q3

REPORT INFORMATION
  Report Type: Spontaneous
  Country: FR (occurrence: FR)
  Receive Date: 20170612
  Receipt Date: 20170711
  Transmission Date: 20171127
  Serious: Yes (Other)
  Sender: FDA-Public Use
  Company Number: FR-BAYER-2017-108799

PATIENT
  Age: 46 Year
  Sex: Female

DRUGS (1)
  1. MIRENA [Suspect]
     Active Substance: LEVONORGESTREL
     Indication: CONTRACEPTION
     Dosage: 20 MCG/24HR, CONT
     Route: 015
     Dates: start: 20141021

REACTIONS (17)
  - Depression [Recovered/Resolved]
  - Alopecia [Recovering/Resolving]
  - Irritability [Recovered/Resolved]
  - Fatigue [Recovered/Resolved]
  - Ovarian cyst [Not Recovered/Not Resolved]
  - Genital haemorrhage [Recovering/Resolving]
  - Breast pain [Unknown]
  - Sciatica [Not Recovered/Not Resolved]
  - Blindness [Unknown]
  - Adnexa uteri pain [Recovered/Resolved]
  - Loss of libido [Recovered/Resolved]
  - Abdominal distension [Recovered/Resolved]
  - Migraine [Recovered/Resolved]
  - Skin hyperpigmentation [Not Recovered/Not Resolved]
  - Back pain [Recovered/Resolved]
  - Nausea [Recovered/Resolved]
  - Abdominal pain upper [Recovered/Resolved]
